FAERS Safety Report 5444302-9 (Version None)
Quarter: 2007Q3

REPORT INFORMATION
  Report Type: 
  Country: None (occurrence: None)
  Receive Date: 20070904
  Receipt Date: 20070904
  Transmission Date: 20080115
  Serious: No
  Sender: FDA-Public Use
  Company Number: None

PATIENT

DRUGS (1)
  1. EFFEXOR XR [Suspect]

REACTIONS (3)
  - BLINDNESS UNILATERAL [None]
  - CHROMATOPSIA [None]
  - DRUG INEFFECTIVE [None]
